FAERS Safety Report 5358134-3 (Version None)
Quarter: 2007Q2

REPORT INFORMATION
  Report Type: 
  Country: None (occurrence: None)
  Receive Date: 20070530
  Receipt Date: 20070116
  Transmission Date: 20071010
  Serious: Yes (Other)
  Sender: FDA-Public Use
  Company Number: US200605006262

PATIENT
  Age: 41 Year
  Sex: Female
  Weight: 77.1 kg

DRUGS (11)
  1. ZYPREXA [Suspect]
     Indication: DEPRESSION
     Dates: start: 19960101, end: 19970101
  2. MEDROXYPROGESTERONE [Concomitant]
  3. ZIPRASIDONE HCL [Concomitant]
  4. CITALOPRAM HYDROBROMIDE [Concomitant]
  5. FLUOXETINE [Concomitant]
  6. VALPROATE SODIUM [Concomitant]
  7. QUETIAPINE FUMARATE [Concomitant]
  8. NEFAZODONE HCL [Concomitant]
  9. PAROXETINE [Concomitant]
  10. GLUCOVANCE [Concomitant]
  11. METFORMIN (METFORMIN) [Concomitant]

REACTIONS (8)
  - BLOOD CHOLESTEROL INCREASED [None]
  - BLOOD TRIGLYCERIDES INCREASED [None]
  - DIABETES MELLITUS [None]
  - HYPERGLYCAEMIC HYPEROSMOLAR NONKETOTIC SYNDROME [None]
  - HYPOGLYCAEMIA [None]
  - METABOLIC DISORDER [None]
  - POLYURIA [None]
  - VISION BLURRED [None]
